FAERS Safety Report 8695928 (Version 4)
Quarter: 2014Q1

REPORT INFORMATION
  Report Type: Spontaneous
  Country: GB (occurrence: GB)
  Receive Date: 20120801
  Receipt Date: 20140130
  Transmission Date: 20141002
  Serious: Yes (Death, Hospitalization)
  Sender: FDA-Public Use
  Company Number: GB-RANBAXY-2012R1-58416

PATIENT
  Age: 77 Year
  Sex: Male

DRUGS (1)
  1. CO-AMOXICLAV [Suspect]
     Indication: CHOLECYSTITIS
     Dosage: UNK
     Route: 048
     Dates: start: 20120615, end: 20120622

REACTIONS (3)
  - Jaundice cholestatic [Not Recovered/Not Resolved]
  - Hepatic failure [Fatal]
  - Cardiac arrest [Not Recovered/Not Resolved]
